FAERS Safety Report 8265356-0 (Version None)
Quarter: 2012Q2

REPORT INFORMATION
  Report Type: 
  Country: None (occurrence: None)
  Receive Date: 20120403
  Receipt Date: 20120321
  Transmission Date: 20120825
  Serious: Yes (Other)
  Sender: FDA-Public Use
  Company Number: NSR_00518_2012

PATIENT
  Age: 5 Month
  Sex: Male
  Weight: 8 kg

DRUGS (3)
  1. GENERAL ANESTHESIA [Suspect]
     Indication: ANAESTHESIA
     Dosage: (DF)
  2. GRANISETRON [Concomitant]
  3. TRAMADOL HCL [Suspect]
     Indication: ANALGESIC THERAPY
     Dosage: (0.2 MG/KG PER HOUR FOR UNKNOWN INTRAVENOUS DRIP)
     Route: 041

REACTIONS (2)
  - CONVULSION [None]
  - PYREXIA [None]
